FAERS Safety Report 9433295 (Version 2)
Quarter: 2013Q3

REPORT INFORMATION
  Report Type: Spontaneous
  Country: TR (occurrence: TR)
  Receive Date: 20130731
  Receipt Date: 20130820
  Transmission Date: 20140515
  Serious: Yes (Hospitalization, Other)
  Sender: FDA-Public Use
  Company Number: TR-WATSON-2013-13193

PATIENT
  Age: 24 Year
  Sex: Female

DRUGS (3)
  1. CIPROFLOXACIN HYDROCHLORIDE (UNKNOWN) [Suspect]
     Indication: SINUSITIS
     Dosage: 500 MG, BID
     Route: 048
  2. CIPROFLOXACIN HYDROCHLORIDE (UNKNOWN) [Suspect]
     Indication: URINARY TRACT INFECTION
  3. PIPERACILLIN/TAZOBACTAM [Concomitant]
     Indication: SEPSIS
     Dosage: UNK
     Route: 065

REACTIONS (4)
  - Convulsion [Recovered/Resolved]
  - Myopathy [Recovering/Resolving]
  - Renal failure acute [Recovered/Resolved]
  - Metabolic acidosis [Recovered/Resolved]
